FAERS Safety Report 6141309-3 (Version None)
Quarter: 2009Q2

REPORT INFORMATION
  Report Type: 
  Country: None (occurrence: None)
  Receive Date: 20090402
  Receipt Date: 20090324
  Transmission Date: 20091009
  Serious: Yes (Hospitalization, Other)
  Sender: FDA-Public Use
  Company Number: US-PURDUE-USA_2008_0032616

PATIENT
  Age: 46 Year
  Sex: Female

DRUGS (13)
  1. OXYCONTIN [Suspect]
     Indication: FIBROMYALGIA
     Dosage: UNK, SEE TEXT
     Dates: start: 20000101, end: 20030101
  2. OXYCODONE HCL [Concomitant]
  3. XANAX [Concomitant]
  4. KLONOPIN [Concomitant]
  5. NEURONTIN [Concomitant]
  6. CELEBREX [Concomitant]
  7. BUSPAR [Concomitant]
  8. ESTRATEST [Concomitant]
  9. PRINIVIL [Concomitant]
  10. URECHOLINE [Concomitant]
  11. AMITRIPTYLINE HCL [Concomitant]
  12. PREVACID [Concomitant]
  13. CELEXA [Concomitant]

REACTIONS (11)
  - ANHEDONIA [None]
  - ANXIETY [None]
  - DRUG DEPENDENCE [None]
  - DRUG WITHDRAWAL SYNDROME [None]
  - GENERAL PHYSICAL HEALTH DETERIORATION [None]
  - HEPATITIS [None]
  - HYPERSOMNIA [None]
  - INTENTIONAL DRUG MISUSE [None]
  - MOOD SWINGS [None]
  - PAIN [None]
  - PERSONALITY CHANGE [None]
